FAERS Safety Report 5522515-5 (Version None)
Quarter: 2007Q4

REPORT INFORMATION
  Report Type: 
  Country: None (occurrence: None)
  Receive Date: 20071120
  Receipt Date: 20071109
  Transmission Date: 20080405
  Serious: Yes (Death, Other)
  Sender: FDA-Public Use
  Company Number: HQWYE394522OCT03

PATIENT
  Sex: Female

DRUGS (1)
  1. PREMARIN [Suspect]
     Dosage: UNSPECIFIED DAILY FOR A NUMBER OF YEARS
     Route: 048

REACTIONS (3)
  - NEOPLASM [None]
  - NEOPLASM MALIGNANT [None]
  - OVARIAN CANCER [None]
